FAERS Safety Report 15614068 (Version 1)
Quarter: 2018Q4

REPORT INFORMATION
  Report Type: Spontaneous
  Country: DE (occurrence: DE)
  Receive Date: 20181113
  Receipt Date: 20181113
  Transmission Date: 20190205
  Serious: Yes (Hospitalization, Other)
  Sender: FDA-Public Use
  Company Number: DE-MYLANLABS-2018M1085581

PATIENT
  Age: 77 Year
  Sex: Male

DRUGS (18)
  1. FUROSEMID                          /00032601/ [Concomitant]
     Active Substance: FUROSEMIDE
     Indication: PRODUCT USED FOR UNKNOWN INDICATION
     Dosage: 40 MG, QD
     Route: 048
     Dates: start: 20180203
  2. OXAZEPAM. [Concomitant]
     Active Substance: OXAZEPAM
     Dosage: 12.5 MG, QD
     Route: 048
     Dates: start: 20180228, end: 20180304
  3. ENALAPRIL [Concomitant]
     Active Substance: ENALAPRIL
     Dosage: B.A.W.
     Route: 048
     Dates: start: 20180202
  4. OXAZEPAM. [Concomitant]
     Active Substance: OXAZEPAM
     Dosage: 10 - 5 MG
     Route: 048
  5. OXAZEPAM. [Concomitant]
     Active Substance: OXAZEPAM
     Dosage: 25 - 30 MG
     Route: 048
  6. RISPERIDONE. [Suspect]
     Active Substance: RISPERIDONE
     Indication: PRODUCT USED FOR UNKNOWN INDICATION
     Dosage: 1 MG, QD
     Route: 048
     Dates: start: 20180201, end: 20180213
  7. RISPERIDONE. [Suspect]
     Active Substance: RISPERIDONE
     Dosage: 0.25 MG, QD
     Route: 048
     Dates: start: 20180307, end: 20180311
  8. ENALAPRIL [Concomitant]
     Active Substance: ENALAPRIL
     Indication: PRODUCT USED FOR UNKNOWN INDICATION
     Dosage: 5 MG, QD
     Route: 048
     Dates: start: 20180201
  9. OXAZEPAM. [Concomitant]
     Active Substance: OXAZEPAM
     Indication: PRODUCT USED FOR UNKNOWN INDICATION
     Dosage: 22.5 MG, QD
     Route: 048
     Dates: start: 20180214, end: 20180220
  10. ERGENYL [Suspect]
     Active Substance: VALPROIC ACID
     Indication: PRODUCT USED FOR UNKNOWN INDICATION
     Dosage: BIS AUF WEITERES
     Route: 048
     Dates: start: 20180303
  11. DOMINAL (PROTHIPENDYL HYDROCHLORIDE) [Concomitant]
     Active Substance: PROTHIPENDYL HYDROCHLORIDE
     Dosage: B.A.W.
     Route: 048
     Dates: start: 20180301
  12. SIMVASTATIN. [Concomitant]
     Active Substance: SIMVASTATIN
     Indication: PRODUCT USED FOR UNKNOWN INDICATION
     Dosage: 20 MG, QD
     Route: 048
     Dates: start: 20180131
  13. DOMINAL (PROTHIPENDYL HYDROCHLORIDE) [Concomitant]
     Active Substance: PROTHIPENDYL HYDROCHLORIDE
     Indication: PRODUCT USED FOR UNKNOWN INDICATION
     Dosage: 40 MG, QD
     Route: 048
     Dates: start: 20180213, end: 20180228
  14. OXAZEPAM. [Concomitant]
     Active Substance: OXAZEPAM
     Dosage: 20 - 15 MG
     Route: 048
  15. RISPERIDONE. [Suspect]
     Active Substance: RISPERIDONE
     Dosage: 0.5 MG, QD
     Route: 048
     Dates: start: 20180131
  16. RISPERIDONE. [Suspect]
     Active Substance: RISPERIDONE
     Dosage: 0.5 MG, QD
     Route: 048
     Dates: start: 20180214, end: 20180306
  17. FUROSEMID                          /00032601/ [Concomitant]
     Active Substance: FUROSEMIDE
     Dosage: B.A.W.
     Route: 048
     Dates: start: 20180204
  18. AZOPT [Concomitant]
     Active Substance: BRINZOLAMIDE
     Indication: PRODUCT USED FOR UNKNOWN INDICATION
     Dosage: 4 MG / B.A.W.
     Route: 047

REACTIONS (1)
  - Pleurothotonus [Recovering/Resolving]

NARRATIVE: CASE EVENT DATE: 20180306
